FAERS Safety Report 4726167-3 (Version None)
Quarter: 2005Q3

REPORT INFORMATION
  Report Type: 
  Country: None (occurrence: None)
  Receive Date: 20050725
  Receipt Date: 20050725
  Transmission Date: 20060218
  Serious: Yes (Disabling)
  Sender: FDA-Public Use
  Company Number: None

PATIENT
  Sex: Male
  Weight: 86.1834 kg

DRUGS (2)
  1. VIDEX [Suspect]
     Indication: URTICARIA
     Dates: start: 19930101, end: 19950101
  2. CALAN [Concomitant]

REACTIONS (2)
  - DRUG INEFFECTIVE [None]
  - MACULAR DEGENERATION [None]
